FAERS Safety Report 5380903-4 (Version None)
Quarter: 2007Q3

REPORT INFORMATION
  Report Type: 
  Country: None (occurrence: None)
  Receive Date: 20070706
  Receipt Date: 20070627
  Transmission Date: 20080115
  Serious: Yes (Hospitalization, Other)
  Sender: FDA-Public Use
  Company Number: CA-ASTRAZENECA-2007UW14998

PATIENT
  Age: 47 Year
  Sex: Female

DRUGS (3)
  1. SEROQUEL [Suspect]
     Indication: BIPOLAR DISORDER
     Dosage: HS
     Route: 048
     Dates: start: 20050801
  2. DURALITH [Concomitant]
     Indication: BIPOLAR DISORDER
     Dosage: HS
     Route: 048
     Dates: start: 19950901
  3. ATIVAN [Concomitant]
     Dosage: QD

REACTIONS (1)
  - MYOCARDIAL INFARCTION [None]
